FAERS Safety Report 5051644-8 (Version None)
Quarter: 2006Q3

REPORT INFORMATION
  Report Type: 
  Country: None (occurrence: None)
  Receive Date: 20060711
  Receipt Date: 20060625
  Transmission Date: 20061208
  Serious: Yes (Other)
  Sender: FDA-Public Use
  Company Number: 2006-144584-NL

PATIENT
  Age: 72 Year
  Sex: Male

DRUGS (9)
  1. MIRTAZAPINE [Suspect]
     Indication: MAJOR DEPRESSION
     Dosage: 7.5 MG DAILY ORAL, USED FOR 5 DAYS
  2. ATENOLOL [Concomitant]
  3. CHOLESTYRAMINE [Concomitant]
  4. ACETAMINOPHEN [Concomitant]
  5. PROCHLORPERAZINE TAB [Concomitant]
  6. INSULIN [Concomitant]
  7. ALBUTEROL SPIROS [Concomitant]
  8. LISINOPRIL [Concomitant]
  9. VANCOMYCIN [Concomitant]

REACTIONS (5)
  - CLOSTRIDIUM DIFFICILE COLITIS [None]
  - CONFUSIONAL STATE [None]
  - DELIRIUM [None]
  - HYPONATRAEMIA [None]
  - SOMNOLENCE [None]
